FAERS Safety Report 4442617-4 (Version None)
Quarter: 2004Q3

REPORT INFORMATION
  Report Type: 
  Country: None (occurrence: None)
  Receive Date: 20040903
  Receipt Date: 20040721
  Transmission Date: 20050211
  Serious: Yes (Other)
  Sender: FDA-Public Use
  Company Number: 2004UW15329

PATIENT
  Age: 84 Year
  Sex: Female
  Weight: 73.4827 kg

DRUGS (13)
  1. CRESTOR [Suspect]
     Indication: BLOOD CHOLESTEROL INCREASED
     Dosage: 10 MG BID PO
     Route: 048
     Dates: start: 20040507
  2. MAXZIDE [Concomitant]
  3. PEPCID [Concomitant]
  4. MULTI-VITAMINS [Concomitant]
  5. SYNTHROID [Concomitant]
  6. AMARYL [Concomitant]
  7. ASPIRIN [Concomitant]
  8. CALCIUM [Concomitant]
  9. OCUVITE [Concomitant]
  10. DIOVAN [Concomitant]
  11. LAXATIVE [Concomitant]
  12. BEXTRA [Concomitant]
  13. ZETIA [Concomitant]

REACTIONS (2)
  - DIFFICULTY IN WALKING [None]
  - MYALGIA [None]
